FAERS Safety Report 6737807-1 (Version None)
Quarter: 2010Q2

REPORT INFORMATION
  Report Type: 
  Country: None (occurrence: None)
  Receive Date: 20100524
  Receipt Date: 20100518
  Transmission Date: 20101027
  Serious: Yes (Other)
  Sender: FDA-Public Use
  Company Number: CHPA2010US08359

PATIENT
  Age: 24 Month
  Sex: Male
  Weight: 19.048 kg

DRUGS (1)
  1. TRIAMINIC DAY TIME COLD + COUGH (NCH) [Suspect]
     Dosage: HALF THE BOTTLE, ONCE
     Route: 048
     Dates: start: 20100513, end: 20100513

REACTIONS (3)
  - ACCIDENTAL DRUG INTAKE BY CHILD [None]
  - ACCIDENTAL OVERDOSE [None]
  - NO ADVERSE EVENT [None]
